FAERS Safety Report 16568454 (Version 8)
Quarter: 2019Q3

REPORT INFORMATION
  Report Type: Spontaneous
  Country: HU (occurrence: HU)
  Receive Date: 20190712
  Receipt Date: 20190903
  Transmission Date: 20191004
  Serious: Yes (Death, Life-Threatening, Hospitalization, Other)
  Sender: FDA-Public Use
  Company Number: HU-009507513-1907HUN004839

PATIENT
  Age: 0 Year
  Sex: Male

DRUGS (28)
  1. MEROPENEM. [Suspect]
     Active Substance: MEROPENEM
     Indication: PNEUMONIA KLEBSIELLA
     Dosage: UNK (FOR 3 DAYS)
     Route: 051
  2. CEFTAZIDIME. [Suspect]
     Active Substance: CEFTAZIDIME
     Indication: ENTEROBACTER INFECTION
  3. ASCORBIC ACID. [Concomitant]
     Active Substance: ASCORBIC ACID
     Route: 065
  4. BETADINE [Concomitant]
     Active Substance: POVIDONE-IODINE
  5. MEROPENEM. [Suspect]
     Active Substance: MEROPENEM
     Dosage: 1 G, BID
     Route: 042
  6. PIPERACILLIN AND TAZOBACTAM [Suspect]
     Active Substance: PIPERACILLIN SODIUM\TAZOBACTAM SODIUM
     Indication: ANTIBIOTIC THERAPY
     Dosage: 4.5 G, QID
     Route: 042
  7. GENTAMICIN. [Suspect]
     Active Substance: GENTAMICIN
     Indication: PSEUDOMONAS INFECTION
  8. IMIPENEM AND CILASTATIN [Suspect]
     Active Substance: CILASTATIN SODIUM\IMIPENEM
     Indication: ENTEROCOCCAL INFECTION
     Dosage: 2000 MILLIGRAM, QD (500 MG, QID )
     Route: 042
  9. IMIPENEM AND CILASTATIN [Suspect]
     Active Substance: CILASTATIN SODIUM\IMIPENEM
     Indication: RENAL IMPAIRMENT
     Dosage: 1000 MILLIGRAM, QD (500 MG, BID)
     Route: 042
  10. FIDAXOMICIN [Suspect]
     Active Substance: FIDAXOMICIN
     Indication: CLOSTRIDIUM DIFFICILE INFECTION
     Dosage: 200 MG, BID
  11. VANCOMYCIN [Suspect]
     Active Substance: VANCOMYCIN
     Indication: CLOSTRIDIUM DIFFICILE INFECTION
     Dosage: 125 MG, QID
     Route: 048
  12. AMOXICILLIN (+) CLAVULANATE POTASSIUM [Suspect]
     Active Substance: AMOXICILLIN\CLAVULANATE POTASSIUM
     Indication: INFLAMMATION
     Dosage: 1.2 G, TID
     Route: 042
  13. AVIBACTAM SODIUM (+) CEFTAZIDIME [Suspect]
     Active Substance: AVIBACTAM SODIUM\CEFTAZIDIME
     Indication: SEPSIS
     Dosage: 2.5 G, TID
     Route: 042
     Dates: start: 20180707, end: 20180713
  14. GENTAMICIN. [Suspect]
     Active Substance: GENTAMICIN
     Indication: ENTEROBACTER INFECTION
     Dosage: 160 MG, DAILY
     Route: 042
  15. METRONIDAZOLE. [Suspect]
     Active Substance: METRONIDAZOLE
     Indication: CLOSTRIDIUM DIFFICILE INFECTION
     Dosage: 100 ML, TID
     Route: 042
  16. CEFTAZIDIME. [Suspect]
     Active Substance: CEFTAZIDIME
     Indication: PSEUDOMONAS INFECTION
     Dosage: 2 G, TID
     Route: 042
  17. METHENAMINE [Concomitant]
     Active Substance: METHENAMINE
     Route: 065
  18. METRONIDAZOLE. [Suspect]
     Active Substance: METRONIDAZOLE
     Indication: PROPHYLAXIS
     Dosage: UNK
  19. CEFTAZIDIME. [Suspect]
     Active Substance: CEFTAZIDIME
     Indication: ENTEROBACTER INFECTION
  20. AMOXICILLIN (+) CLAVULANATE POTASSIUM [Suspect]
     Active Substance: AMOXICILLIN\CLAVULANATE POTASSIUM
     Indication: PROPHYLAXIS
  21. AVIBACTAM SODIUM (+) CEFTAZIDIME [Suspect]
     Active Substance: AVIBACTAM SODIUM\CEFTAZIDIME
     Indication: PNEUMONIA KLEBSIELLA
  22. METRONIDAZOLE. [Suspect]
     Active Substance: METRONIDAZOLE
     Indication: INFLAMMATION
  23. FOSFOMYCIN [Suspect]
     Active Substance: FOSFOMYCIN
     Indication: PNEUMONIA KLEBSIELLA
     Dosage: 3 G, DAILY
     Route: 048
  24. CEFUROXIME. [Suspect]
     Active Substance: CEFUROXIME
     Indication: ESCHERICHIA INFECTION
  25. SULFAMETHOXAZOLE (+) TRIMETHOPRIM [Suspect]
     Active Substance: SULFAMETHOXAZOLE\TRIMETHOPRIM
     Indication: CITROBACTER INFECTION
     Dosage: 400/80 MG
     Route: 048
  26. FOSFOMYCIN [Suspect]
     Active Substance: FOSFOMYCIN
     Dosage: UNK
  27. CEFUROXIME. [Suspect]
     Active Substance: CEFUROXIME
     Indication: INFLAMMATION
     Dosage: 1.5 G, TID
     Route: 042
  28. GENTAMICIN. [Suspect]
     Active Substance: GENTAMICIN
     Indication: ENTEROBACTER INFECTION

REACTIONS (17)
  - Drug resistance [Unknown]
  - Diarrhoea [Unknown]
  - Pathogen resistance [Fatal]
  - Clostridium difficile infection [Not Recovered/Not Resolved]
  - Gastroenteritis [Unknown]
  - Dyspnoea [Unknown]
  - Hypoxia [Unknown]
  - Malaise [Unknown]
  - Pyrexia [Unknown]
  - Chest pain [Unknown]
  - Product use in unapproved indication [Unknown]
  - Septic shock [Fatal]
  - Respiratory failure [Unknown]
  - Anaemia [Unknown]
  - Melaena [Unknown]
  - Sepsis [Fatal]
  - Chills [Unknown]

NARRATIVE: CASE EVENT DATE: 20180718
